FAERS Safety Report 20730627 (Version 1)
Quarter: 2022Q2

REPORT INFORMATION
  Report Type: Spontaneous
  Country: US (occurrence: None)
  Receive Date: 20220417
  Receipt Date: 20220417
  Transmission Date: 20220720
  Serious: No
  Sender: FDA-Public Use
  Company Number: None

PATIENT

DRUGS (1)
  1. SUAVE [Suspect]
     Active Substance: ALUMINUM ZIRCONIUM TETRACHLOROHYDREX GLY

REACTIONS (5)
  - Skin irritation [None]
  - Burning sensation [None]
  - Skin warm [None]
  - Erythema [None]
  - Sensitive skin [None]
